FAERS Safety Report 24261662 (Version 2)
Quarter: 2024Q3

REPORT INFORMATION
  Report Type: Report from Study
  Country: US (occurrence: US)
  Receive Date: 20240829
  Receipt Date: 20240926
  Transmission Date: 20241016
  Serious: No
  Sender: ACADIA PHARMACEUTICALS
  Company Number: US-ACADIA PHARMACEUTICALS INC.-ACA-2024-TRF-004427

PATIENT
  Sex: Female

DRUGS (2)
  1. DAYBUE [Suspect]
     Active Substance: TROFINETIDE
     Indication: Rett syndrome
     Dosage: 5 MILLILITER
  2. DAYBUE [Suspect]
     Active Substance: TROFINETIDE
     Dosage: DOSE DECREASE TO 5-10 ML BID VIA G-TUBE

REACTIONS (3)
  - Constipation [Not Recovered/Not Resolved]
  - Underdose [Not Recovered/Not Resolved]
  - Diarrhoea [Not Recovered/Not Resolved]
